FAERS Safety Report 14243873 (Version 2)
Quarter: 2017Q4

REPORT INFORMATION
  Report Type: Spontaneous
  Country: JP (occurrence: JP)
  Receive Date: 20171201
  Receipt Date: 20171218
  Transmission Date: 20180321
  Serious: Yes (Hospitalization)
  Sender: FDA-Public Use
  Company Number: PHJP2017JP034943

PATIENT
  Age: 77 Year
  Sex: Female

DRUGS (2)
  1. STALEVO [Suspect]
     Active Substance: CARBIDOPA\ENTACAPONE\LEVODOPA
     Dosage: 2 DFS: (1 DF: CARBIDOPA 5 MG/ENTACAPONE 100 MG/LEVODOPA 100 MG, UNK)
     Route: 048
     Dates: start: 201511
  2. STALEVO [Suspect]
     Active Substance: CARBIDOPA\ENTACAPONE\LEVODOPA
     Indication: PARKINSON^S DISEASE
     Dosage: 2 DFS: (1 DF: CARBIDOPA 10 MG/ENTACAPONE 100 MG/LEVODOPA 100 MG, UNK)
     Route: 048
     Dates: start: 201511

REACTIONS (1)
  - Ileus [Unknown]

NARRATIVE: CASE EVENT DATE: 201711
